FAERS Safety Report 4275186-2 (Version None)
Quarter: 2004Q1

REPORT INFORMATION
  Report Type: 
  Country: None (occurrence: None)
  Receive Date: 20040116
  Receipt Date: 20040107
  Transmission Date: 20041129
  Serious: Yes (Death)
  Sender: FDA-Public Use
  Company Number: 2003AP03640

PATIENT
  Age: 51 Year
  Sex: Male

DRUGS (5)
  1. IRESSA [Suspect]
     Indication: NON-SMALL CELL LUNG CANCER
     Dosage: 250 MG DAILY PO
     Route: 048
     Dates: start: 20021203
  2. CISPLATIN [Concomitant]
  3. PACLITAXEL [Concomitant]
  4. VASOLAN [Concomitant]
  5. DIGOSIN [Concomitant]

REACTIONS (10)
  - BACK PAIN [None]
  - HAEMOPTYSIS [None]
  - HAEMOTHORAX [None]
  - LYMPHADENOPATHY MEDIASTINAL [None]
  - MALIGNANT NEOPLASM PROGRESSION [None]
  - NON-SMALL CELL LUNG CANCER STAGE IIIB [None]
  - PLATELET COUNT DECREASED [None]
  - RESPIRATORY ARREST [None]
  - SPUTUM ABNORMAL [None]
  - WEIGHT DECREASED [None]
